FAERS Safety Report 24029648 (Version 1)
Quarter: 2024Q2

REPORT INFORMATION
  Report Type: Spontaneous
  Country: US (occurrence: US)
  Receive Date: 20240628
  Receipt Date: 20240628
  Transmission Date: 20240716
  Serious: Yes (Hospitalization)
  Sender: FDA-Public Use
  Company Number: US-MYLANLABS-2024M1057357

PATIENT
  Age: 20 Year
  Sex: Male

DRUGS (3)
  1. LEVETIRACETAM [Suspect]
     Active Substance: LEVETIRACETAM
     Indication: Status epilepticus
     Dosage: UNK
     Route: 065
  2. LORAZEPAM [Concomitant]
     Active Substance: LORAZEPAM
     Indication: Status epilepticus
     Dosage: UNK, MULTIPLE DOSES
     Route: 065
  3. PROPOFOL [Concomitant]
     Active Substance: PROPOFOL
     Indication: Status epilepticus
     Dosage: UNK (INTRAVENOUS INFUSION)
     Route: 042

REACTIONS (1)
  - Rhabdomyolysis [Recovering/Resolving]
